FAERS Safety Report 5198089-8 (Version None)
Quarter: 2006Q4

REPORT INFORMATION
  Report Type: 
  Country: None (occurrence: None)
  Receive Date: 20061229
  Receipt Date: 20061215
  Transmission Date: 20070319
  Serious: Yes (Other)
  Sender: FDA-Public Use
  Company Number: 2006300533

PATIENT
  Sex: Male

DRUGS (2)
  1. ROGAINE 5 [Suspect]
     Dosage: TOPICAL
     Route: 061
     Dates: start: 20061001
  2. PREDNISONE TAB [Suspect]

REACTIONS (7)
  - ASTHENIA [None]
  - ERECTILE DYSFUNCTION [None]
  - HYPOAESTHESIA [None]
  - LIBIDO DECREASED [None]
  - MOVEMENT DISORDER [None]
  - NERVE COMPRESSION [None]
  - PARAESTHESIA [None]
